FAERS Safety Report 11340564 (Version 5)
Quarter: 2016Q3

REPORT INFORMATION
  Report Type: Report from Study
  Country: US (occurrence: US)
  Receive Date: 20150805
  Receipt Date: 20160822
  Transmission Date: 20161109
  Serious: Yes (Hospitalization, Other)
  Sender: FDA-Public Use
  Company Number: US-SA-2015SA115266

PATIENT
  Age: 47 Year
  Sex: Male

DRUGS (1)
  1. LEMTRADA [Suspect]
     Active Substance: ALEMTUZUMAB
     Indication: MULTIPLE SCLEROSIS
     Route: 041
     Dates: start: 20150713, end: 20150717

REACTIONS (11)
  - Tooth extraction [Unknown]
  - Condition aggravated [Unknown]
  - Hospitalisation [Unknown]
  - Weight increased [Unknown]
  - Urosepsis [Recovered/Resolved]
  - Nasopharyngitis [Unknown]
  - Walking aid user [Unknown]
  - Upper respiratory tract infection [Not Recovered/Not Resolved]
  - Urinary tract infection [Unknown]
  - Nasal congestion [Not Recovered/Not Resolved]
  - Multiple sclerosis relapse [Unknown]

NARRATIVE: CASE EVENT DATE: 2015
